FAERS Safety Report 4471582-9 (Version None)
Quarter: 2004Q4

REPORT INFORMATION
  Report Type: 
  Country: None (occurrence: None)
  Receive Date: 20041012
  Receipt Date: 20040721
  Transmission Date: 20050328
  Serious: Yes (Hospitalization)
  Sender: FDA-Public Use
  Company Number: JP-GLAXOSMITHKLINE-B0340455A

PATIENT
  Age: 82 Year
  Sex: Female
  Weight: 48 kg

DRUGS (7)
  1. VALTREX [Suspect]
     Indication: HERPES ZOSTER
     Dosage: 1000MG THREE TIMES PER DAY
     Route: 048
     Dates: start: 20030419, end: 20030420
  2. ZOVIRAX [Suspect]
     Indication: HERPES ZOSTER
     Dosage: 250MG PER DAY
     Route: 042
     Dates: start: 20030418, end: 20030418
  3. VOLTAREN [Concomitant]
     Indication: HERPES ZOSTER
     Route: 054
     Dates: start: 20030419, end: 20030420
  4. VOLTAREN [Concomitant]
     Dosage: 75MG PER DAY
     Route: 048
     Dates: start: 20030418, end: 20030419
  5. CYANOCOBALAMIN [Concomitant]
     Indication: HERPES ZOSTER
     Dosage: 3U PER DAY
     Route: 065
     Dates: start: 20030418, end: 20030419
  6. GLYCLAMIN [Concomitant]
     Indication: HERPES ZOSTER
     Dosage: 2.01G PER DAY
     Route: 048
     Dates: start: 20030418, end: 20030419
  7. ANDERM [Concomitant]
     Route: 061

REACTIONS (13)
  - ABASIA [None]
  - BLOOD CREATININE INCREASED [None]
  - BLOOD UREA INCREASED [None]
  - DYSPNOEA [None]
  - INCREASED APPETITE [None]
  - MALAISE [None]
  - MUSCULAR WEAKNESS [None]
  - OLIGURIA [None]
  - PRESCRIBED OVERDOSE [None]
  - RASH [None]
  - RENAL FAILURE ACUTE [None]
  - RENAL IMPAIRMENT [None]
  - SCAB [None]
